FAERS Safety Report 7130212-8 (Version None)
Quarter: 2010Q4

REPORT INFORMATION
  Report Type: 
  Country: None (occurrence: None)
  Receive Date: 20101116
  Receipt Date: 20101109
  Transmission Date: 20110411
  Serious: Yes (Other)
  Sender: FDA-Public Use
  Company Number: US-ACCORD-006574

PATIENT
  Age: 44 Year
  Sex: Female

DRUGS (9)
  1. DOXORUBICIN(DOXORUBICIN) [Suspect]
     Indication: BREAST CANCER
  2. PACLITAXEL [Suspect]
     Indication: BREAST CANCER
  3. TRASTUZUMAB(TRASTUZUMAB) [Suspect]
     Indication: BREAST CANCER
  4. CYCLOPHOSPHAMIDE [Concomitant]
  5. ACETAMINOPHEN W/HYDROCODONE(ACETAMINOPHEN W/HYDROCODONE) [Concomitant]
  6. DIPHENHYDRAMINE HCL [Concomitant]
  7. LORAZEPAM [Concomitant]
  8. PALONOSETRON HYDROCHLORIDE (PALONOSETRON HYDROCHLORIDE) [Concomitant]
  9. DEXAMETHASONE [Concomitant]

REACTIONS (5)
  - CUTANEOUS LUPUS ERYTHEMATOSUS [None]
  - HAEMATOCRIT DECREASED [None]
  - HAEMOGLOBIN DECREASED [None]
  - LYMPHOCYTE PERCENTAGE DECREASED [None]
  - NEUTROPHIL PERCENTAGE INCREASED [None]
